FAERS Safety Report 8831934 (Version 2)
Quarter: 2012Q4

REPORT INFORMATION
  Report Type: 
  Country: DE (occurrence: JP)
  Receive Date: 20121008
  Receipt Date: 20121024
  Transmission Date: 20130627
  Serious: Yes (Death, Hospitalization, Other)
  Sender: FDA-Public Use
  Company Number: DE-ASTRAZENECA-2012SE75041

PATIENT
  Age: 47 Year
  Sex: Male

DRUGS (3)
  1. OMEPRAL [Suspect]
     Indication: GASTRIC ULCER HAEMORRHAGE
     Route: 042
     Dates: start: 2006
  2. OMEPRAL [Suspect]
     Indication: GASTRIC ULCER HAEMORRHAGE
     Route: 048
  3. LANSOPRAZOLE [Suspect]
     Indication: GASTRIC ULCER
     Route: 048

REACTIONS (3)
  - Lung neoplasm malignant [Fatal]
  - Peptic ulcer [Recovered/Resolved]
  - Hyperchlorhydria [Unknown]
